APPROVED DRUG PRODUCT: NAFTIFINE HYDROCHLORIDE
Active Ingredient: NAFTIFINE HYDROCHLORIDE
Strength: 2%
Dosage Form/Route: CREAM;TOPICAL
Application: A206901 | Product #001 | TE Code: AB
Applicant: SUN PHARMA CANADA INC
Approved: Jan 6, 2016 | RLD: No | RS: No | Type: RX